FAERS Safety Report 12769103 (Version 1)
Quarter: 2016Q3

REPORT INFORMATION
  Report Type: Spontaneous
  Country: US (occurrence: US)
  Receive Date: 20160921
  Receipt Date: 20160921
  Transmission Date: 20161109
  Serious: No
  Sender: FDA-Public Use
  Company Number: US-ASTRAZENECA-2016SE78141

PATIENT
  Age: 26628 Day
  Sex: Female

DRUGS (1)
  1. SYMBICORT [Suspect]
     Active Substance: BUDESONIDE\FORMOTEROL FUMARATE DIHYDRATE
     Dosage: 160/4.5 MCG 120 INHALATIONS
     Route: 055

REACTIONS (3)
  - Dyspnoea [Unknown]
  - Product packaging quantity issue [Unknown]
  - Device issue [Unknown]

NARRATIVE: CASE EVENT DATE: 20160714
